FAERS Safety Report 7911075-7 (Version None)
Quarter: 2011Q4

REPORT INFORMATION
  Report Type: 
  Country: None (occurrence: None)
  Receive Date: 20111114
  Receipt Date: 20111104
  Transmission Date: 20120403
  Serious: Yes (Hospitalization)
  Sender: FDA-Public Use
  Company Number: FR-BRISTOL-MYERS SQUIBB COMPANY-16224636

PATIENT
  Age: 77 Year
  Sex: Male

DRUGS (12)
  1. ACETAMINOPHEN [Concomitant]
     Dosage: 600MG/50MG
  2. GLUCOPHAGE [Suspect]
     Route: 048
     Dates: end: 20110907
  3. SPECIAFOLDINE [Concomitant]
     Dosage: 1DF:5 MG TAB
     Route: 048
  4. LAMALINE [Concomitant]
  5. POLYETHYLENE GLYCOL [Concomitant]
  6. REPAGLINIDE [Concomitant]
  7. TAMSULOSIN HCL [Concomitant]
     Dosage: 1DF:0.4 MG TAB
     Route: 048
  8. FENOFIBRATE [Suspect]
     Route: 048
     Dates: end: 20110908
  9. AVODART [Concomitant]
     Dosage: 1DF:0.5 MG CAP
     Route: 048
  10. NEBCIN [Suspect]
     Indication: SKIN ULCER
     Dosage: 100MG SOLN FOR INJ
     Route: 030
     Dates: start: 20110825, end: 20110831
  11. LOSARTAN POTASSIUM AND HYDROCHLOROTHIAZIDE [Suspect]
     Dosage: 1DF:100MG/25MG
     Route: 048
     Dates: end: 20110907
  12. PLAVIX [Concomitant]

REACTIONS (3)
  - DEHYDRATION [None]
  - RENAL FAILURE ACUTE [None]
  - ANURIA [None]
